FAERS Safety Report 19836754 (Version 1)
Quarter: 2021Q3

REPORT INFORMATION
  Report Type: Report from Study
  Country: MX (occurrence: MX)
  Receive Date: 20210914
  Receipt Date: 20210914
  Transmission Date: 20211014
  Serious: Yes (Hospitalization)
  Sender: FDA-Public Use
  Company Number: NVSC2021MX185746

PATIENT
  Age: 1 Year
  Sex: Female
  Weight: 7.8 kg

DRUGS (2)
  1. PREDNISOLONE. [Concomitant]
     Active Substance: PREDNISOLONE
     Indication: PRODUCT USED FOR UNKNOWN INDICATION
     Dosage: 9 MG, Q24H
     Route: 048
     Dates: start: 20210805
  2. ONASEMNOGENE ABEPARVOVEC [Suspect]
     Active Substance: ONASEMNOGENE ABEPARVOVEC
     Indication: SPINAL MUSCULAR ATROPHY
     Dosage: 44 ML, ONCE/SINGLE
     Route: 042
     Dates: start: 20210806, end: 20210806

REACTIONS (2)
  - Troponin I increased [Recovered/Resolved]
  - Vomiting [Unknown]

NARRATIVE: CASE EVENT DATE: 20210808
